FAERS Safety Report 15546668 (Version 1)
Quarter: 2018Q4

REPORT INFORMATION
  Report Type: Spontaneous
  Country: CZ (occurrence: CZ)
  Receive Date: 20181024
  Receipt Date: 20181024
  Transmission Date: 20190205
  Serious: Yes (Other)
  Sender: FDA-Public Use
  Company Number: CZ-MYLANLABS-2018M1079720

PATIENT
  Sex: Male

DRUGS (9)
  1. IRINOTECAN [Suspect]
     Active Substance: IRINOTECAN
     Indication: COLORECTAL CANCER
     Dosage: PART OF FOLFIRI  REGIMEN
     Route: 042
  2. CALCIUM GLUCONICUM                 /00060701/ [Concomitant]
     Active Substance: CALCIUM GLUCONATE
     Indication: PRODUCT USED FOR UNKNOWN INDICATION
     Dosage: PRE-MEDICATION
  3. FLUOROURACIL. [Concomitant]
     Active Substance: FLUOROURACIL
     Indication: COLORECTAL CANCER
     Dosage: UNK
  4. PALONOSETRON. [Concomitant]
     Active Substance: PALONOSETRON HYDROCHLORIDE
     Indication: PRODUCT USED FOR UNKNOWN INDICATION
     Dosage: PRE-MEDICATION
  5. CAPECITABINE. [Concomitant]
     Active Substance: CAPECITABINE
     Indication: COLORECTAL CANCER
     Dosage: UNK
     Route: 048
  6. BEVACIZUMAB. [Concomitant]
     Active Substance: BEVACIZUMAB
     Indication: COLORECTAL CANCER
     Dosage: UNK
  7. TIPIRACIL;TRIFLURIDINE [Concomitant]
     Indication: COLORECTAL CANCER
     Dosage: 35 MG/M2 TWICE DAILY FROM 1ST TILL 5TH DAY AND THEN FROM 8TH TO 12TH DAY EVERY 28 DAYS
     Dates: start: 20160209, end: 201712
  8. FOLINIC ACID [Suspect]
     Active Substance: LEUCOVORIN
     Indication: COLORECTAL CANCER
     Dosage: PART OF FOLFIRI  REGIMEN
     Route: 042
  9. DEXAMETHASONE. [Concomitant]
     Active Substance: DEXAMETHASONE
     Indication: PRODUCT USED FOR UNKNOWN INDICATION
     Dosage: PRE-MEDICATION

REACTIONS (9)
  - Circulatory collapse [Recovered/Resolved]
  - Decreased appetite [Unknown]
  - Respiratory arrest [Recovered/Resolved]
  - Facial bones fracture [Recovered/Resolved]
  - Nausea [Unknown]
  - Syncope [Recovered/Resolved]
  - Loss of consciousness [Recovered/Resolved]
  - Neutropenia [Unknown]
  - Anaemia [Unknown]

NARRATIVE: CASE EVENT DATE: 2015
